FAERS Safety Report 22904002 (Version 3)
Quarter: 2023Q4

REPORT INFORMATION
  Report Type: Report from Study
  Country: IL (occurrence: IL)
  Receive Date: 20230905
  Receipt Date: 20231107
  Transmission Date: 20240109
  Serious: Yes (Hospitalization)
  Sender: FDA-Public Use
  Company Number: IL-ABBVIE-5381466

PATIENT
  Sex: Male

DRUGS (3)
  1. CARBIDOPA\LEVODOPA [Suspect]
     Active Substance: CARBIDOPA\LEVODOPA
     Indication: Parkinson^s disease
     Dosage: MORNING DOSAGE(ML)  4.9, CONTINUOUS DOSAGE (ML/H)  1.6, EXTRA DOSAGE (ML)  1.0.
     Route: 050
  2. CARBIDOPA\LEVODOPA [Suspect]
     Active Substance: CARBIDOPA\LEVODOPA
     Dosage: MORNING DOSAGE(ML)  5.6, CONTINUOUS DOSAGE (ML/H)  1.6, EXTRA DOSAGE (ML)  1.0.?CONTINUOUS DOSAGE...
     Route: 050
  3. CARBIDOPA\LEVODOPA [Suspect]
     Active Substance: CARBIDOPA\LEVODOPA
     Route: 050
     Dates: start: 20190815

REACTIONS (8)
  - Urinary tract infection [Recovered/Resolved]
  - Hallucination [Not Recovered/Not Resolved]
  - Device dislocation [Unknown]
  - Stoma site erythema [Unknown]
  - Musculoskeletal stiffness [Recovering/Resolving]
  - Somnolence [Recovering/Resolving]
  - Aphonia [Not Recovered/Not Resolved]
  - Fluid intake reduced [Not Recovered/Not Resolved]
